FAERS Safety Report 14176631 (Version 1)
Quarter: 2017Q4

REPORT INFORMATION
  Report Type: Spontaneous
  Country: US (occurrence: US)
  Receive Date: 20171109
  Receipt Date: 20171109
  Transmission Date: 20180321
  Serious: Yes (Disabling)
  Sender: FDA-Public Use
  Company Number: None

PATIENT
  Age: 37 Year
  Sex: Female
  Weight: 53.1 kg

DRUGS (2)
  1. ALBUTERAL [Concomitant]
     Active Substance: ALBUTEROL
  2. HYDROCORTISONE CREAM [Suspect]
     Active Substance: HYDROCORTISONE
     Indication: ECZEMA
     Dosage: OTHER STRENGTH:LOW;QUANTITY:1 LOW;?
     Route: 061
     Dates: start: 19980901, end: 20130401

REACTIONS (2)
  - Neuralgia [None]
  - Steroid withdrawal syndrome [None]

NARRATIVE: CASE EVENT DATE: 20130401
